FAERS Safety Report 23579202 (Version 1)
Quarter: 2024Q1

REPORT INFORMATION
  Report Type: Spontaneous
  Country: FR (occurrence: FR)
  Receive Date: 20240229
  Receipt Date: 20240229
  Transmission Date: 20240409
  Serious: Yes (Other)
  Sender: FDA-Public Use
  Company Number: FR-TEVA-VS-3136470

PATIENT
  Sex: Male

DRUGS (3)
  1. HYDROXYZINE HYDROCHLORIDE [Suspect]
     Active Substance: HYDROXYZINE HYDROCHLORIDE
     Indication: Anxiety
     Dosage: SOMETIMES TOOK ONE TABLET OF HYDROXYZINE TEVA 25 MG
     Route: 065
     Dates: start: 202304
  2. HYDROXYZINE HYDROCHLORIDE [Suspect]
     Active Substance: HYDROXYZINE HYDROCHLORIDE
     Indication: Anxiety
     Dosage: TOOK ONE TABLET OF HYDROXYZINE TEVA 25 MG
     Route: 065
     Dates: start: 20231117
  3. EFFEXOR [Concomitant]
     Active Substance: VENLAFAXINE HYDROCHLORIDE

REACTIONS (5)
  - Syncope [Recovered/Resolved]
  - Balance disorder [Unknown]
  - Malaise [Unknown]
  - Dizziness [Recovered/Resolved]
  - Drug interaction [Unknown]
